FAERS Safety Report 7995989-8 (Version None)
Quarter: 2011Q4

REPORT INFORMATION
  Report Type: 
  Country: None (occurrence: None)
  Receive Date: 20111220
  Receipt Date: 20111206
  Transmission Date: 20120403
  Serious: Yes (Hospitalization, Other)
  Sender: FDA-Public Use
  Company Number: PHHY2011CA62209

PATIENT
  Sex: Female

DRUGS (4)
  1. SANDOSTATIN [Suspect]
     Indication: CARCINOID TUMOUR
     Route: 058
  2. SANDOSTATIN LAR [Suspect]
     Dosage: 20 MG, EVERY 4 WEEKS
     Route: 030
     Dates: start: 20110705
  3. SANDOSTATIN LAR [Suspect]
     Indication: CARCINOID TUMOUR
     Dosage: 20 MG, QMO
     Route: 030
     Dates: start: 20110705
  4. NORFLOXACIN [Concomitant]
     Dosage: UNK UKN, BID

REACTIONS (18)
  - URINARY TRACT INFECTION [None]
  - DISCOMFORT [None]
  - FACIAL PAIN [None]
  - MALAISE [None]
  - DIARRHOEA [None]
  - RECTAL HAEMORRHAGE [None]
  - BLOOD CREATINE INCREASED [None]
  - LETHARGY [None]
  - HAEMOGLOBIN DECREASED [None]
  - WHITE BLOOD CELL COUNT INCREASED [None]
  - BLOOD PRESSURE DECREASED [None]
  - TREMOR [None]
  - NAUSEA [None]
  - LIVER ABSCESS [None]
  - VOMITING [None]
  - LOSS OF CONTROL OF LEGS [None]
  - FATIGUE [None]
  - INJECTION SITE PAIN [None]
